FAERS Safety Report 6409588-2 (Version None)
Quarter: 2009Q4

REPORT INFORMATION
  Report Type: 
  Country: None (occurrence: None)
  Receive Date: 20091020
  Receipt Date: 20091020
  Transmission Date: 20100525
  Serious: No
  Sender: FDA-Public Use
  Company Number: None

PATIENT
  Age: 52 Year
  Sex: Female
  Weight: 67.1324 kg

DRUGS (1)
  1. DEXT. SCC, AMPHOSP 20; 20 MG; MFG BY BARR [Suspect]
     Indication: NARCOLEPSY
     Dosage: 20 MG 3 TIMES/DAY BY MOUTH
     Route: 048
     Dates: start: 20091003, end: 20091009

REACTIONS (8)
  - CONTUSION [None]
  - DRUG INEFFECTIVE [None]
  - MUSCLE STRAIN [None]
  - PAIN [None]
  - PRODUCT SUBSTITUTION ISSUE [None]
  - ROAD TRAFFIC ACCIDENT [None]
  - SOMNAMBULISM [None]
  - SUDDEN ONSET OF SLEEP [None]
